FAERS Safety Report 5862636-0 (Version None)
Quarter: 2008Q3

REPORT INFORMATION
  Report Type: 
  Country: None (occurrence: None)
  Receive Date: 20080818
  Receipt Date: 20080619
  Transmission Date: 20090109
  Serious: No
  Sender: FDA-Public Use
  Company Number: WAES 0806USA07707

PATIENT
  Age: 72 Year
  Sex: Male

DRUGS (5)
  1. JANUVIA [Suspect]
     Dosage: PO
     Route: 048
     Dates: start: 20070601
  2. PLAVIX [Suspect]
     Indication: CEREBROVASCULAR ACCIDENT
     Dosage: 75 MG/DAILY/PO
     Route: 048
     Dates: start: 20070601
  3. FENOFIBRATE [Concomitant]
  4. FUROSEMIDE [Concomitant]
  5. LOSARTAN POTASSIUM [Concomitant]

REACTIONS (2)
  - CONFUSIONAL STATE [None]
  - DISORIENTATION [None]
